FAERS Safety Report 9062166 (Version 1)
Quarter: 2013Q1

REPORT INFORMATION
  Report Type: Spontaneous
  Country: FR (occurrence: FR)
  Receive Date: 20130127
  Receipt Date: 20130127
  Transmission Date: 20140127
  Serious: Yes (Hospitalization)
  Sender: FDA-Public Use
  Company Number: FR-TEVA-381434ISR

PATIENT
  Age: 43 Year
  Sex: Female

DRUGS (2)
  1. OXALIPLATIN TEVA [Suspect]
     Indication: COLON CANCER
     Route: 041
     Dates: start: 20121127, end: 20121127
  2. ELVORINE [Suspect]
     Indication: COLON CANCER
     Route: 041
     Dates: start: 20121127, end: 20121127

REACTIONS (2)
  - Infusion related reaction [Recovered/Resolved]
  - Rash [Recovered/Resolved]
